FAERS Safety Report 4970542-9 (Version None)
Quarter: 2006Q2

REPORT INFORMATION
  Report Type: 
  Country: None (occurrence: None)
  Receive Date: 20060412
  Receipt Date: 20050829
  Transmission Date: 20061013
  Serious: Yes (Hospitalization)
  Sender: FDA-Public Use
  Company Number: US-MERCK-0508USA04956

PATIENT
  Age: 75 Year
  Sex: Female
  Weight: 57 kg

DRUGS (3)
  1. VIOXX [Suspect]
     Indication: MUSCLE SPASMS
     Route: 048
     Dates: start: 20000101, end: 20030901
  2. VIOXX [Suspect]
     Indication: HERPES ZOSTER
     Route: 048
     Dates: start: 20000101, end: 20030901
  3. TYLENOL (CAPLET) [Concomitant]
     Route: 065

REACTIONS (16)
  - ASTHENIA [None]
  - ATROPHIC VULVOVAGINITIS [None]
  - CEREBROVASCULAR ACCIDENT [None]
  - CONFUSIONAL STATE [None]
  - CRYING [None]
  - DEHYDRATION [None]
  - DEMENTIA ALZHEIMER'S TYPE [None]
  - DEPRESSED LEVEL OF CONSCIOUSNESS [None]
  - DEPRESSION [None]
  - DIABETES MELLITUS NON-INSULIN-DEPENDENT [None]
  - FALL [None]
  - GASTROENTERITIS [None]
  - LETHARGY [None]
  - MENINGIOMA [None]
  - RASH [None]
  - URINARY TRACT INFECTION [None]
